FAERS Safety Report 12155379 (Version 1)
Quarter: 2016Q1

REPORT INFORMATION
  Report Type: Spontaneous
  Country: DE (occurrence: DE)
  Receive Date: 20160307
  Receipt Date: 20160307
  Transmission Date: 20160526
  Serious: Yes (Death, Hospitalization)
  Sender: FDA-Public Use
  Company Number: GXKR2016DE001157

PATIENT

DRUGS (4)
  1. TORASEMIDE [Suspect]
     Active Substance: TORSEMIDE
     Dosage: 10 MG, UNK, DOSE INCREASED ONE DAY AFTER DISCHARGE FROM HOSPITAL
     Route: 065
     Dates: start: 20150114
  2. RISPERIDONE. [Suspect]
     Active Substance: RISPERIDONE
     Dosage: 3 MG, UNK
     Route: 065
  3. TORASEMIDE [Suspect]
     Active Substance: TORSEMIDE
     Indication: PRODUCT USED FOR UNKNOWN INDICATION
     Dosage: 5 MG, QD
     Route: 065
     Dates: end: 20150113
  4. RISPERIDONE. [Suspect]
     Active Substance: RISPERIDONE
     Indication: PRODUCT USED FOR UNKNOWN INDICATION
     Dosage: 6 MG, UNK

REACTIONS (25)
  - Muscle spasms [Unknown]
  - Sleep disorder [Unknown]
  - Urinary incontinence [Unknown]
  - Pyrexia [Fatal]
  - Renal failure [Fatal]
  - Oedema peripheral [Unknown]
  - Face oedema [Unknown]
  - Dandruff [Unknown]
  - Unresponsive to stimuli [Unknown]
  - Dyskinesia [Unknown]
  - Oedema [Unknown]
  - Lip oedema [Unknown]
  - Eczema [Unknown]
  - Rhinorrhoea [Unknown]
  - Erythema [Unknown]
  - Asthenia [Unknown]
  - Anal incontinence [Unknown]
  - Joint stiffness [Unknown]
  - Posture abnormal [Unknown]
  - Fungal infection [Unknown]
  - Myocardial infarction [Fatal]
  - Infection [Fatal]
  - Muscular weakness [Unknown]
  - Language disorder [Unknown]
  - Decreased interest [Unknown]

NARRATIVE: CASE EVENT DATE: 20150530
